FAERS Safety Report 5054949-X (Version None)
Quarter: 2006Q3

REPORT INFORMATION
  Report Type: 
  Country: None (occurrence: None)
  Receive Date: 20060719
  Receipt Date: 20060130
  Transmission Date: 20061208
  Serious: Yes (Other)
  Sender: FDA-Public Use
  Company Number: 2006UW01600

PATIENT
  Age: 89 Year
  Sex: Female
  Weight: 38.6 kg

DRUGS (14)
  1. SEROQUEL [Suspect]
     Indication: HALLUCINATION
     Route: 048
     Dates: start: 20030101, end: 20060501
  2. SEROQUEL [Suspect]
     Indication: PARAESTHESIA
     Route: 048
     Dates: start: 20030101, end: 20060501
  3. SEROQUEL [Suspect]
     Route: 048
     Dates: start: 20060501
  4. SEROQUEL [Suspect]
     Route: 048
     Dates: start: 20060501
  5. SINEMET [Concomitant]
  6. COZAAR [Concomitant]
  7. IMDUR [Concomitant]
  8. LASIX [Concomitant]
  9. POTASSIUM [Concomitant]
  10. ZANTAC [Concomitant]
  11. ARICEPT [Concomitant]
  12. JIFEREX [Concomitant]
  13. NITROSTAT [Concomitant]
  14. OMEPRAZOLE [Concomitant]

REACTIONS (2)
  - COLON NEOPLASM [None]
  - TREMOR [None]
